FAERS Safety Report 5845483-5 (Version None)
Quarter: 2008Q3

REPORT INFORMATION
  Report Type: 
  Country: None (occurrence: None)
  Receive Date: 20080814
  Receipt Date: 20080731
  Transmission Date: 20090109
  Serious: Yes (Other)
  Sender: FDA-Public Use
  Company Number: AT-WYE-G01998308

PATIENT
  Sex: Male

DRUGS (2)
  1. EFFEXOR XR [Suspect]
     Dosage: ONE CAPSULE
     Dates: start: 20080731, end: 20080731
  2. CENTRUM [Concomitant]
     Dosage: ONE TABLET
     Dates: start: 20080731, end: 20080731

REACTIONS (4)
  - DRUG ABUSE [None]
  - DYSPEPSIA [None]
  - HYPERHIDROSIS [None]
  - NAUSEA [None]
